FAERS Safety Report 11009306 (Version 1)
Quarter: 2015Q2

REPORT INFORMATION
  Report Type: Spontaneous
  Country: US (occurrence: None)
  Receive Date: 20150409
  Receipt Date: 20150409
  Transmission Date: 20150821
  Serious: Yes (Other)
  Sender: FDA-Public Use
  Company Number: None

PATIENT
  Age: 30 Year
  Sex: Female
  Weight: 54.43 kg

DRUGS (3)
  1. ADDEROL [Concomitant]
  2. VITAMIN D [Concomitant]
     Active Substance: CHOLECALCIFEROL
  3. LEVOTHYROXINE [Suspect]
     Active Substance: LEVOTHYROXINE
     Indication: HYPOTHYROIDISM
     Dosage: 1
     Dates: end: 20150408

REACTIONS (5)
  - Skin irritation [None]
  - Urticaria [None]
  - Pruritus [None]
  - Dry skin [None]
  - Acne [None]

NARRATIVE: CASE EVENT DATE: 20150401
